FAERS Safety Report 23191646 (Version 1)
Quarter: 2023Q4

REPORT INFORMATION
  Report Type: Spontaneous
  Country: US (occurrence: None)
  Receive Date: 20231115
  Receipt Date: 20231115
  Transmission Date: 20240110
  Serious: Yes (Hospitalization)
  Sender: FDA-Public Use
  Company Number: None

PATIENT
  Age: 54 Year
  Sex: Female

DRUGS (2)
  1. OPSUMIT [Suspect]
     Active Substance: MACITENTAN
     Indication: Pulmonary arterial hypertension
     Dosage: 10 MG DAILY BY MOUTH
     Route: 048
     Dates: start: 202006
  2. C-TREPROSTINIL (2.5) RM [Concomitant]

REACTIONS (3)
  - Chest discomfort [None]
  - Hyperhidrosis [None]
  - Dry mouth [None]

NARRATIVE: CASE EVENT DATE: 20231111
